FAERS Safety Report 17270759 (Version 1)
Quarter: 2020Q1

REPORT INFORMATION
  Report Type: Report from Study
  Country: None (occurrence: CO)
  Receive Date: 20200114
  Receipt Date: 20200114
  Transmission Date: 20200409
  Serious: Yes (Hospitalization)
  Sender: FDA-Public Use
  Company Number: CO-ABBVIE-19K-036-3200549-00

PATIENT
  Age: 3 Month
  Sex: Male
  Weight: 4 kg

DRUGS (1)
  1. SYNAGIS [Suspect]
     Active Substance: PALIVIZUMAB
     Indication: BRONCHOPULMONARY DYSPLASIA
     Route: 030
     Dates: start: 20191024, end: 20191024

REACTIONS (7)
  - Productive cough [Unknown]
  - Dyspnoea [Unknown]
  - Decreased activity [Unknown]
  - Seizure [Unknown]
  - Cardio-respiratory arrest [Unknown]
  - Hypotonia [Unknown]
  - Pallor [Unknown]

NARRATIVE: CASE EVENT DATE: 20191211
